FAERS Safety Report 20635203 (Version 2)
Quarter: 2022Q3

REPORT INFORMATION
  Report Type: Spontaneous
  Country: CA (occurrence: CA)
  Receive Date: 20220325
  Receipt Date: 20220920
  Transmission Date: 20221026
  Serious: Yes (Hospitalization, Other)
  Sender: FDA-Public Use
  Company Number: CA-SA-SAC20220318000286

PATIENT
  Age: 69 Year
  Sex: Male

DRUGS (3)
  1. CLOPIDOGREL BISULFATE [Interacting]
     Active Substance: CLOPIDOGREL BISULFATE
     Indication: Product used for unknown indication
     Dosage: UNK
  2. IMBRUVICA [Interacting]
     Active Substance: IBRUTINIB
     Indication: Mantle cell lymphoma
     Dosage: 520 MG, 5 EVERY 1 DAYS
     Route: 048
  3. IMBRUVICA [Interacting]
     Active Substance: IBRUTINIB
     Indication: Non-Hodgkin^s lymphoma
     Dosage: 560 MG, QID
     Route: 048
     Dates: start: 20201022

REACTIONS (6)
  - Cardiac disorder [Unknown]
  - Haemorrhage [Unknown]
  - Coronary artery bypass [Recovering/Resolving]
  - Drug interaction [Unknown]
  - Incorrect dose administered [Unknown]
  - Off label use [Unknown]

NARRATIVE: CASE EVENT DATE: 20220130
